FAERS Safety Report 20084362 (Version 1)
Quarter: 2021Q4

REPORT INFORMATION
  Report Type: Report from Study
  Country: US (occurrence: US)
  Receive Date: 20211118
  Receipt Date: 20211118
  Transmission Date: 20220304
  Serious: Yes (Other)
  Sender: FDA-Public Use
  Company Number: US-ABBVIE-21K-163-4164541-00

PATIENT
  Age: 59 Year
  Sex: Female

DRUGS (2)
  1. SKYRIZI [Suspect]
     Active Substance: RISANKIZUMAB-RZAA
     Indication: Psoriasis
     Route: 058
     Dates: end: 2021
  2. COVID-19 VACCINE [Concomitant]
     Indication: COVID-19 immunisation
     Dosage: MANUFACTURED BY JOHNSON AND JOHNSON
     Route: 030
     Dates: start: 2021, end: 2021

REACTIONS (1)
  - Cardiac operation [Unknown]

NARRATIVE: CASE EVENT DATE: 20210701
